FAERS Safety Report 9380167 (Version 1)
Quarter: 2013Q3

REPORT INFORMATION
  Report Type: Spontaneous
  Country: US (occurrence: US)
  Receive Date: 20130702
  Receipt Date: 20130702
  Transmission Date: 20140515
  Serious: No
  Sender: FDA-Public Use
  Company Number: US-BAYER-2013-073208

PATIENT
  Sex: Female

DRUGS (1)
  1. PRECOSE [Suspect]
     Indication: GLUCOSE TOLERANCE IMPAIRED
     Dosage: 125 MG DAILY
     Route: 048

REACTIONS (4)
  - Weight fluctuation [None]
  - Feeling abnormal [None]
  - Weight decreased [None]
  - Blood glucose abnormal [None]
